FAERS Safety Report 7455727-4 (Version None)
Quarter: 2011Q1

REPORT INFORMATION
  Report Type: 
  Country: None (occurrence: None)
  Receive Date: 20110302
  Receipt Date: 20110118
  Transmission Date: 20110831
  Serious: No
  Sender: FDA-Public Use
  Company Number: 025716

PATIENT
  Sex: Female

DRUGS (2)
  1. CIMZIA [Suspect]
     Indication: CROHN'S DISEASE
     Dosage: SUBCUTANEOUS
     Route: 058
  2. MERCAPTOPURINE [Suspect]
     Dosage: 125 MG, 75 MG

REACTIONS (3)
  - MALAISE [None]
  - DEHYDRATION [None]
  - HEADACHE [None]
